FAERS Safety Report 6686921-8 (Version None)
Quarter: 2010Q2

REPORT INFORMATION
  Report Type: 
  Country: None (occurrence: None)
  Receive Date: 20100419
  Receipt Date: 20100406
  Transmission Date: 20101027
  Serious: Yes (Other)
  Sender: FDA-Public Use
  Company Number: PHEH2008US03987

PATIENT
  Sex: Female

DRUGS (2)
  1. ZOMETA [Suspect]
     Dates: start: 19970101
  2. AREDIA [Suspect]

REACTIONS (11)
  - ANXIETY [None]
  - DECREASED INTEREST [None]
  - DENTAL CARE [None]
  - DEPRESSED MOOD [None]
  - GENERAL PHYSICAL HEALTH DETERIORATION [None]
  - GINGIVAL INFECTION [None]
  - HYPOPHAGIA [None]
  - LOOSE TOOTH [None]
  - OSTEONECROSIS [None]
  - PAIN [None]
  - WEIGHT DECREASED [None]
